FAERS Safety Report 23934393 (Version 8)
Quarter: 2025Q2

REPORT INFORMATION
  Report Type: Spontaneous
  Country: US (occurrence: US)
  Receive Date: 20240603
  Receipt Date: 20250623
  Transmission Date: 20250717
  Serious: No
  Sender: KARYOPHARM THERAPEUTICS
  Company Number: US-KARYOPHARM-2024KPT000972

PATIENT

DRUGS (22)
  1. XPOVIO [Suspect]
     Active Substance: SELINEXOR
     Indication: Plasma cell myeloma
     Route: 048
     Dates: start: 2024
  2. XPOVIO [Suspect]
     Active Substance: SELINEXOR
     Route: 048
     Dates: start: 2024, end: 2024
  3. XPOVIO [Suspect]
     Active Substance: SELINEXOR
     Route: 048
     Dates: start: 202405
  4. XPOVIO [Suspect]
     Active Substance: SELINEXOR
     Route: 048
     Dates: start: 20240424, end: 20240424
  5. XPOVIO [Suspect]
     Active Substance: SELINEXOR
     Route: 048
     Dates: start: 20240502, end: 20240503
  6. XPOVIO [Suspect]
     Active Substance: SELINEXOR
     Route: 048
  7. OMEPRAZOLE [Concomitant]
     Active Substance: OMEPRAZOLE
  8. MORPHINE [Concomitant]
     Active Substance: MORPHINE
  9. DEXAMETHASONE [Concomitant]
     Active Substance: DEXAMETHASONE
  10. COLESTID [Concomitant]
     Active Substance: COLESTIPOL HYDROCHLORIDE
  11. BACTRIM [Concomitant]
     Active Substance: SULFAMETHOXAZOLE\TRIMETHOPRIM
  12. XARELTO [Concomitant]
     Active Substance: RIVAROXABAN
  13. VALTREX [Concomitant]
     Active Substance: VALACYCLOVIR HYDROCHLORIDE
  14. TESTOSTERONE [Concomitant]
     Active Substance: TESTOSTERONE
     Route: 062
  15. OXYCODONE [Concomitant]
     Active Substance: OXYCODONE
  16. CETIRIZINE HYDROCHLORIDE [Concomitant]
     Active Substance: CETIRIZINE HYDROCHLORIDE
  17. DIPHENHYDRAMINE HYDROCHLORIDE\LIDOCAINE HYDROCHLORIDE\NYSTATIN [Concomitant]
     Active Substance: DIPHENHYDRAMINE HYDROCHLORIDE\LIDOCAINE HYDROCHLORIDE\NYSTATIN
  18. KYPROLIS [Concomitant]
     Active Substance: CARFILZOMIB
     Route: 042
  19. FLOMAX [Concomitant]
     Active Substance: TAMSULOSIN HYDROCHLORIDE
  20. GABAPENTIN [Concomitant]
     Active Substance: GABAPENTIN
  21. CYCLOBENZAPRINE [Concomitant]
     Active Substance: CYCLOBENZAPRINE
  22. TAMSULOSIN [Concomitant]
     Active Substance: TAMSULOSIN

REACTIONS (10)
  - Abdominal discomfort [Unknown]
  - Malaise [Not Recovered/Not Resolved]
  - Oropharyngeal pain [Unknown]
  - Dysphonia [Unknown]
  - Cardiac disorder [Unknown]
  - Nausea [Not Recovered/Not Resolved]
  - Pneumonia [Recovering/Resolving]
  - Thrombocytopenia [Recovering/Resolving]
  - Diarrhoea [Not Recovered/Not Resolved]
  - Fatigue [Unknown]

NARRATIVE: CASE EVENT DATE: 20240101
